FAERS Safety Report 23075005 (Version 1)
Quarter: 2023Q4

REPORT INFORMATION
  Report Type: Spontaneous
  Country: BR (occurrence: BR)
  Receive Date: 20231017
  Receipt Date: 20231017
  Transmission Date: 20240110
  Serious: Yes (Death, Other)
  Sender: FDA-Public Use
  Company Number: BR-KOREA IPSEN Pharma-2023-23753

PATIENT
  Age: 58 Year
  Sex: Male

DRUGS (2)
  1. CABOMETYX [Suspect]
     Active Substance: CABOZANTINIB S-MALATE
     Indication: Renal neoplasm
     Dosage: 40 MG (2 TABLETS PER DAY)
     Route: 065
  2. CABOMETYX [Suspect]
     Active Substance: CABOZANTINIB S-MALATE
     Indication: Metastases to lung

REACTIONS (4)
  - Septic shock [Fatal]
  - Pneumonia [Fatal]
  - Chronic kidney disease [Fatal]
  - Malignant neoplasm progression [Fatal]
